FAERS Safety Report 8669428 (Version 4)
Quarter: 2012Q4

REPORT INFORMATION
  Report Type: 
  Country: AU (occurrence: AU)
  Receive Date: 20120718
  Receipt Date: 20121019
  Transmission Date: 20130627
  Serious: Yes (Hospitalization, Other)
  Sender: FDA-Public Use
  Company Number: AU-AMGEN-AUSSP2012043135

PATIENT
  Age: 59 Year
  Sex: Female

DRUGS (12)
  1. FILGRASTIM [Suspect]
     Indication: FEBRILE NEUTROPENIA
     Dosage: 200 UNK, UNK
     Route: 058
     Dates: start: 20120517, end: 20120601
  2. CIMZIA [Suspect]
     Indication: RHEUMATOID ARTHRITIS
     Dosage: 200 mg, q2wk
     Route: 058
     Dates: start: 2012, end: 20120514
  3. CIMZIA [Suspect]
     Indication: FELTY^S SYNDROME
  4. ARTIFICIAL TEARS                   /00445101/ [Concomitant]
     Dosage: 3.5 g, UNK
     Route: 047
  5. CIPROFLOXACIN [Concomitant]
     Dosage: 500 mg, bid
     Route: 048
  6. CHOLECALCIFEROL [Concomitant]
     Route: 048
  7. FOLIC ACID [Concomitant]
     Dosage: 5 mg, qd
     Route: 048
  8. MUPIROCIN [Concomitant]
     Dosage: UNK UNK, qid
     Route: 061
  9. PANTOPRAZOLE [Concomitant]
     Dosage: 40 mg, UNK
     Route: 048
  10. PERINDOPRIL [Concomitant]
     Dosage: 2.5 mg, UNK
     Route: 048
  11. PREDNISOLONE [Concomitant]
     Dosage: 5 mg, bid
  12. CEFEPIME [Concomitant]
     Indication: FEBRILE NEUTROPENIA
     Dosage: UNK
     Route: 042
     Dates: start: 20120517

REACTIONS (5)
  - White blood cell count increased [Recovered/Resolved]
  - Rheumatoid arthritis [Recovered/Resolved]
  - Febrile neutropenia [Recovered/Resolved with Sequelae]
  - Condition aggravated [Recovered/Resolved]
  - Rash [Recovered/Resolved]
